FAERS Safety Report 9166982 (Version 1)
Quarter: 2013Q1

REPORT INFORMATION
  Report Type: Spontaneous
  Country: US (occurrence: US)
  Receive Date: 20130317
  Receipt Date: 20130317
  Transmission Date: 20140127
  Serious: No
  Sender: FDA-Public Use
  Company Number: US-009507513-1303USA003480

PATIENT
  Age: 63 Year
  Sex: Male

DRUGS (5)
  1. REBETOL [Suspect]
     Indication: CHRONIC HEPATITIS C
     Dosage: 1200 MG EVERY DAY, DIVIDED DOSES
     Route: 048
     Dates: start: 20110930
  2. REBETOL [Suspect]
     Dosage: 1000MG/DAY IN DIVIDED DOSES, DECREASED DOSE
     Route: 048
     Dates: start: 20111213
  3. PEGASYS [Suspect]
     Indication: CHRONIC HEPATITIS C
     Dosage: 180 UG, 1 IN 1 WEEK
     Route: 058
     Dates: start: 20110930
  4. VICTRELIS [Suspect]
     Indication: CHRONIC HEPATITIS C
     Dosage: 800 MG THREE TIMES DAILY
     Route: 048
     Dates: start: 20111104, end: 20120330
  5. NEUPOGEN [Concomitant]

REACTIONS (15)
  - Fatigue [Unknown]
  - Influenza like illness [Unknown]
  - Insomnia [Unknown]
  - Vertigo [Unknown]
  - Haemoglobin decreased [Unknown]
  - Vomiting [Recovered/Resolved]
  - Nausea [Recovered/Resolved]
  - Decreased appetite [Unknown]
  - Depression [Unknown]
  - Anaemia [Unknown]
  - White blood cell count decreased [Unknown]
  - Anaemia [Unknown]
  - Staphylococcal infection [Unknown]
  - Malaise [Unknown]
  - White blood cell count decreased [Unknown]
